FAERS Safety Report 8616994-4 (Version None)
Quarter: 2012Q3

REPORT INFORMATION
  Report Type: 
  Country: None (occurrence: None)
  Receive Date: 20120823
  Receipt Date: 20120813
  Transmission Date: 20120928
  Serious: No
  Sender: FDA-Public Use
  Company Number: US-009507513-1208USA006112

PATIENT

DRUGS (4)
  1. METOPROLOL TARTRATE [Concomitant]
     Dosage: UNK
  2. AMLODIPINE [Concomitant]
     Dosage: UNK
  3. VITAMINS (UNSPECIFIED) [Concomitant]
     Dosage: UNK
  4. ZETIA [Suspect]
     Indication: BLOOD CHOLESTEROL
     Dosage: UNK
     Route: 048
     Dates: start: 20120731

REACTIONS (1)
  - PAIN IN EXTREMITY [None]
